FAERS Safety Report 19433935 (Version 1)
Quarter: 2021Q2

REPORT INFORMATION
  Report Type: Spontaneous
  Country: CN (occurrence: CN)
  Receive Date: 20210618
  Receipt Date: 20210618
  Transmission Date: 20210717
  Serious: Yes (Other)
  Sender: FDA-Public Use
  Company Number: CN-SUN PHARMACEUTICAL INDUSTRIES LTD-2021R1-300471

PATIENT
  Age: 47 Year
  Sex: Female

DRUGS (6)
  1. CISPLATIN. [Suspect]
     Active Substance: CISPLATIN
     Indication: CHEMOTHERAPY
     Dosage: 75 MG/M2 (7 CYCLES)
     Route: 065
     Dates: start: 20130108, end: 20130829
  2. VINORELBINE [Suspect]
     Active Substance: VINORELBINE TARTRATE
     Indication: CHEMOTHERAPY
     Dosage: 30 MG/M2 (7 CYCLES)
     Route: 065
     Dates: start: 20130108, end: 20130829
  3. DOCETAXEL. [Suspect]
     Active Substance: DOCETAXEL
     Indication: CHEMOTHERAPY
     Dosage: 75 MG/M2 (7 CYCLES)
     Route: 065
     Dates: start: 20130108, end: 20130829
  4. ENDOSTAR [Suspect]
     Active Substance: ENDOSTATIN
     Indication: CHEMOTHERAPY
     Dosage: UNK ( 7 CYCLES)
     Route: 065
     Dates: start: 20130108, end: 20130829
  5. PEMETREXED. [Suspect]
     Active Substance: PEMETREXED
     Indication: CHEMOTHERAPY
     Dosage: 500 MG/M2 (7 CYCLES)
     Route: 065
     Dates: start: 20130108, end: 20130829
  6. PACLITAXEL. [Suspect]
     Active Substance: PACLITAXEL
     Indication: CHEMOTHERAPY
     Dosage: 150 MG/M2 (7 CYCLES)
     Route: 065
     Dates: start: 20130108, end: 20130829

REACTIONS (5)
  - Drug ineffective [Unknown]
  - Metastases to pleura [Recovering/Resolving]
  - Metastases to liver [Recovering/Resolving]
  - Metastases to lung [Recovering/Resolving]
  - Metastases to central nervous system [Recovering/Resolving]
